FAERS Safety Report 11841808 (Version 3)
Quarter: 2018Q4

REPORT INFORMATION
  Report Type: Spontaneous
  Country: DE (occurrence: DE)
  Receive Date: 20151216
  Receipt Date: 20181030
  Transmission Date: 20190204
  Serious: Yes (Death, Life-Threatening, Other)
  Sender: FDA-Public Use
  Company Number: DE-PFIZER INC-2015444984

PATIENT
  Age: 53 Year
  Sex: Male

DRUGS (11)
  1. ASA [Interacting]
     Active Substance: ASPIRIN
     Dosage: 100 MG, DAILY
  2. CERTOPARIN SODIUM [Concomitant]
     Active Substance: CERTOPARIN SODIUM
     Dosage: 2X 3,000 U
  3. HEPARIN [Concomitant]
     Active Substance: HEPARIN SODIUM
     Indication: ANTICOAGULANT THERAPY
     Dosage: 3000 IU, UNK
     Route: 042
  4. IBUPROFEN. [Suspect]
     Active Substance: IBUPROFEN
     Indication: ANTIPLATELET THERAPY
     Dosage: 40 MG, DAILY TAKEN AT LEAST 2 H AFTER ASA
     Route: 048
  5. ASA [Interacting]
     Active Substance: ASPIRIN
     Indication: ANTIPLATELET THERAPY
     Dosage: 500 MG, UNK
     Route: 042
  6. DEXAMETHASONE. [Concomitant]
     Active Substance: DEXAMETHASONE
     Indication: OEDEMA
     Dosage: 40 MG, UNK
     Route: 042
  7. DEXAMETHASONE. [Concomitant]
     Active Substance: DEXAMETHASONE
     Indication: INFLAMMATION
  8. TICAGRELOR. [Concomitant]
     Active Substance: TICAGRELOR
     Dosage: 2 ? 90 MG, DAILY
  9. TICAGRELOR. [Concomitant]
     Active Substance: TICAGRELOR
     Indication: ANTIPLATELET THERAPY
     Dosage: 180 MG, UNK
     Route: 048
  10. EPTIFIBATIDE. [Concomitant]
     Active Substance: EPTIFIBATIDE
     Indication: ANTIPLATELET THERAPY
     Dosage: 15.8 MG, UNK
     Route: 042
  11. DEXAMETHASONE. [Concomitant]
     Active Substance: DEXAMETHASONE
     Indication: STEROID THERAPY
     Dosage: 3X 4 MG, DAILY

REACTIONS (9)
  - Fall [Unknown]
  - Brain stem infarction [Fatal]
  - Brain oedema [Fatal]
  - Cardio-respiratory arrest [Fatal]
  - Brain herniation [Fatal]
  - Vascular stent thrombosis [Fatal]
  - Arterial thrombosis [Fatal]
  - Drug interaction [Fatal]
  - Coma [Unknown]
